FAERS Safety Report 9711240 (Version 1)
Quarter: 2013Q4

REPORT INFORMATION
  Report Type: Spontaneous
  Country: US (occurrence: US)
  Receive Date: 20131126
  Receipt Date: 20131126
  Transmission Date: 20140711
  Serious: No
  Sender: FDA-Public Use
  Company Number: US-BRISTOL-MYERS SQUIBB COMPANY-18748608

PATIENT
  Age: 65 Year
  Sex: Female

DRUGS (2)
  1. BYDUREON [Suspect]
     Dosage: NO OF INJ:4
     Dates: start: 2013
  2. SULFONYLUREA [Concomitant]

REACTIONS (4)
  - Injection site reaction [Recovering/Resolving]
  - Injection site pruritus [Recovered/Resolved]
  - Injection site erythema [Recovered/Resolved]
  - Injection site pain [Unknown]
